FAERS Safety Report 6406079-X (Version None)
Quarter: 2009Q4

REPORT INFORMATION
  Report Type: 
  Country: None (occurrence: None)
  Receive Date: 20091019
  Receipt Date: 20091009
  Transmission Date: 20100525
  Serious: Yes (Hospitalization, Other)
  Sender: FDA-Public Use
  Company Number: US-ELI_LILLY_AND_COMPANY-US200910002323

PATIENT
  Age: 86 Year
  Sex: Female

DRUGS (1)
  1. FORTEO [Suspect]
     Dosage: 20 UG, DAILY (1/D)
     Dates: start: 20090828, end: 20091001

REACTIONS (5)
  - DECREASED APPETITE [None]
  - GASTRIC DISORDER [None]
  - NAUSEA [None]
  - PAIN [None]
  - RENAL FAILURE [None]
